FAERS Safety Report 19083457 (Version 1)
Quarter: 2021Q2

REPORT INFORMATION
  Report Type: Spontaneous
  Country: US (occurrence: US)
  Receive Date: 20210401
  Receipt Date: 20210401
  Transmission Date: 20210717
  Serious: Yes (Hospitalization)
  Sender: FDA-Public Use
  Company Number: US-ASTRAZENECA-2021A224178

PATIENT
  Sex: Male

DRUGS (2)
  1. BYDUREON [Suspect]
     Active Substance: EXENATIDE
     Dosage: STARTING ABOUT 2 AND A HALF YEARS AGO
     Route: 065
  2. BYDUREON BCISE [Suspect]
     Active Substance: EXENATIDE
     Indication: TYPE 2 DIABETES MELLITUS
     Dosage: 1 AND A HALF YEARS AGO
     Route: 058

REACTIONS (8)
  - Drug delivery system malfunction [Unknown]
  - Intentional device misuse [Unknown]
  - COVID-19 [Recovered/Resolved]
  - Injection site haemorrhage [Unknown]
  - Injection site mass [Unknown]
  - Cerebrovascular accident [Recovered/Resolved]
  - Product storage error [Unknown]
  - Incorrect dose administered by device [Unknown]
